FAERS Safety Report 12498558 (Version 1)
Quarter: 2016Q2

REPORT INFORMATION
  Report Type: Spontaneous
  Country: IS (occurrence: IS)
  Receive Date: 20160627
  Receipt Date: 20160627
  Transmission Date: 20160815
  Serious: Yes (Hospitalization, Other)
  Sender: FDA-Public Use
  Company Number: IS-009507513-1504ISL011779

PATIENT
  Age: 62 Year
  Sex: Male

DRUGS (1)
  1. CUBICIN [Suspect]
     Active Substance: DAPTOMYCIN
     Indication: ENDOCARDITIS STAPHYLOCOCCAL
     Dosage: 850 MG, QD
     Route: 042
     Dates: start: 20111208, end: 20111223

REACTIONS (3)
  - Acute respiratory distress syndrome [Unknown]
  - Aortic valve incompetence [Unknown]
  - Pulmonary eosinophilia [Not Recovered/Not Resolved]

NARRATIVE: CASE EVENT DATE: 20111222
